FAERS Safety Report 6398753-9 (Version None)
Quarter: 2009Q4

REPORT INFORMATION
  Report Type: 
  Country: None (occurrence: None)
  Receive Date: 20091013
  Receipt Date: 20091012
  Transmission Date: 20100525
  Serious: Yes (Hospitalization)
  Sender: FDA-Public Use
  Company Number: PHHO2009US08911

PATIENT
  Sex: Female
  Weight: 90.4 kg

DRUGS (26)
  1. BLINDED NO TREATMENT RECEIVED NOMED [Suspect]
     Indication: GLUCOSE TOLERANCE IMPAIRED
     Dosage: DOUBLE BLIND
     Route: 048
     Dates: start: 20020613
  2. BLINDED PLACEBO PLACEBO [Suspect]
     Indication: GLUCOSE TOLERANCE IMPAIRED
     Dosage: DOUBLE BLIND
     Route: 048
     Dates: start: 20020613
  3. STARLIX [Suspect]
     Indication: GLUCOSE TOLERANCE IMPAIRED
     Dosage: DOUBLE BLIND
     Route: 048
     Dates: start: 20020613
  4. PLACEBO OR VALSARTAN [Suspect]
     Indication: CARDIOVASCULAR DISORDER
     Dosage: DOUBLE BLIND
     Route: 048
     Dates: start: 20020613, end: 20090630
  5. CYANOCOBALAMIN [Concomitant]
  6. XALATAN [Concomitant]
  7. LIPITOR [Concomitant]
  8. IBUPROFEN [Concomitant]
  9. CYMBALTA [Concomitant]
  10. SINGULAIR [Concomitant]
  11. ZYRTEC [Concomitant]
  12. PREVACID [Concomitant]
  13. ZANTAC [Concomitant]
  14. MAGNESIUM [Concomitant]
  15. MALIC ACID [Concomitant]
  16. LODINE [Concomitant]
  17. MORPHINE [Concomitant]
  18. NORVASC [Concomitant]
  19. XANAX [Concomitant]
  20. ARIMIDEX [Concomitant]
  21. TRAMADOL HCL [Concomitant]
  22. METANX [Concomitant]
  23. ARGININE [Concomitant]
  24. ZETIA [Concomitant]
  25. ASTELIN [Concomitant]
  26. RESTASIS [Concomitant]

REACTIONS (8)
  - BLOOD GLUCOSE INCREASED [None]
  - CHEST PAIN [None]
  - DIZZINESS [None]
  - DYSPNOEA [None]
  - HEADACHE [None]
  - HYPERTENSION [None]
  - NAUSEA [None]
  - PRESYNCOPE [None]
